FAERS Safety Report 6843480-4 (Version None)
Quarter: 2010Q3

REPORT INFORMATION
  Report Type: 
  Country: None (occurrence: None)
  Receive Date: 20100715
  Receipt Date: 20100706
  Transmission Date: 20110219
  Serious: Yes (Hospitalization)
  Sender: FDA-Public Use
  Company Number: FR-JNJFOC-20100702460

PATIENT
  Sex: Male
  Weight: 108 kg

DRUGS (8)
  1. RISPERDAL CONSTA [Suspect]
     Indication: PSYCHOTIC DISORDER
     Route: 030
  2. ATARAX [Suspect]
     Indication: PSYCHOTIC DISORDER
     Route: 065
  3. AOTAL [Concomitant]
     Route: 065
  4. ALDACTONE [Concomitant]
     Route: 065
  5. ESCITALOPRAM OXALATE [Concomitant]
     Indication: PSYCHOTIC DISORDER
     Route: 065
  6. AMLOR [Concomitant]
     Route: 065
  7. VITAMIN B COMPLEX CAP [Concomitant]
     Route: 065
  8. LERCANIDIPINE [Concomitant]
     Route: 065

REACTIONS (3)
  - CYTOLYTIC HEPATITIS [None]
  - NEUTROPENIA [None]
  - THROMBOCYTOPENIA [None]
